FAERS Safety Report 26096750 (Version 1)
Quarter: 2025Q4

REPORT INFORMATION
  Report Type: Spontaneous
  Country: EU (occurrence: EU)
  Receive Date: 20251127
  Receipt Date: 20251127
  Transmission Date: 20260117
  Serious: Yes (Hospitalization, Other)
  Sender: AUROBINDO
  Company Number: EU-AFSSAPS-RN2025001096

PATIENT
  Age: 87 Year
  Sex: Male
  Weight: 67 kg

DRUGS (2)
  1. AMOXICILLIN [Suspect]
     Active Substance: AMOXICILLIN
     Indication: Endocarditis
     Dosage: DC AT 10G/24H THEN 8G/24H
     Dates: start: 20251029, end: 20251031
  2. CEFTRIAXONE [Suspect]
     Active Substance: CEFTRIAXONE
     Indication: Endocarditis
     Dosage: 2 GRAM, ONCE A DAY
     Dates: start: 20251029, end: 20251031

REACTIONS (1)
  - Acute kidney injury [Recovering/Resolving]

NARRATIVE: CASE EVENT DATE: 20251031
